FAERS Safety Report 7800073-X (Version None)
Quarter: 2011Q4

REPORT INFORMATION
  Report Type: 
  Country: None (occurrence: None)
  Receive Date: 20111006
  Receipt Date: 20110927
  Transmission Date: 20120403
  Serious: Yes (Hospitalization, Other)
  Sender: FDA-Public Use
  Company Number: US-ASTRAZENECA-2011SE09424

PATIENT
  Age: 67 Year
  Sex: Female

DRUGS (8)
  1. SEROQUEL XR [Suspect]
     Route: 048
  2. SEROQUEL XR [Suspect]
     Indication: MENTAL DISORDER
     Route: 048
  3. LITHIUM [Concomitant]
  4. SEROQUEL XR [Suspect]
     Route: 048
  5. SEROQUEL XR [Suspect]
     Indication: MANIA
     Route: 048
  6. SEROQUEL XR [Suspect]
     Route: 048
  7. MOOD STABILIZERS [Concomitant]
  8. SEROQUEL XR [Suspect]
     Route: 048

REACTIONS (8)
  - STRESS [None]
  - HUNGER [None]
  - MULTIPLE FRACTURES [None]
  - CONDITION AGGRAVATED [None]
  - FALL [None]
  - HIP FRACTURE [None]
  - THERAPEUTIC RESPONSE UNEXPECTED [None]
  - DRY MOUTH [None]
